FAERS Safety Report 10646560 (Version 1)
Quarter: 2014Q4

REPORT INFORMATION
  Report Type: Spontaneous
  Country: US (occurrence: US)
  Receive Date: 20141211
  Receipt Date: 20141211
  Transmission Date: 20150529
  Serious: No
  Sender: FDA-Public Use
  Company Number: US-PFIZER INC-2014338985

PATIENT
  Age: 63 Year
  Sex: Female

DRUGS (2)
  1. LYRICA [Suspect]
     Active Substance: PREGABALIN
     Dosage: UNK, 2X/DAY
  2. EXCEDRIN P.M. [Suspect]
     Active Substance: ACETAMINOPHEN\DIPHENHYDRAMINE\DIPHENHYDRAMINE CITRATE
     Dosage: 100 MG, UNK

REACTIONS (7)
  - Feeling drunk [Unknown]
  - Euphoric mood [Unknown]
  - Fibromyalgia [Unknown]
  - Feeling abnormal [Unknown]
  - Increased appetite [Unknown]
  - Muscular weakness [Unknown]
  - Arthritis [Unknown]
